FAERS Safety Report 9543961 (Version 2)
Quarter: 2014Q1

REPORT INFORMATION
  Report Type: Spontaneous
  Country: US (occurrence: None)
  Receive Date: 20130524
  Receipt Date: 20130724
  Transmission Date: 20141002
  Serious: Yes (Other)
  Sender: FDA-Public Use
  Company Number: PHEH2013US001329

PATIENT
  Age: 44 Year
  Sex: Female
  Weight: 51 kg

DRUGS (5)
  1. GILENYA [Suspect]
     Indication: MULTIPLE SCLEROSIS RELAPSE
     Route: 048
     Dates: start: 20130107
  2. VICODIN (HYDROCODONE BITARTRATE, PARACETAMOL) [Concomitant]
  3. ALPRAZOLAM [Concomitant]
  4. METHYLPHENIDATE [Concomitant]
  5. METHOCARBAMOL [Concomitant]

REACTIONS (6)
  - Atrioventricular block second degree [None]
  - Atrioventricular block first degree [None]
  - Electrocardiogram abnormal [None]
  - Sinus bradycardia [None]
  - Dizziness [None]
  - Heart rate decreased [None]
